FAERS Safety Report 5849247-8 (Version None)
Quarter: 2008Q3

REPORT INFORMATION
  Report Type: 
  Country: None (occurrence: None)
  Receive Date: 20080815
  Receipt Date: 20080804
  Transmission Date: 20090109
  Serious: Yes (Disabling, Other)
  Sender: FDA-Public Use
  Company Number: 2008-180466-NL

PATIENT
  Sex: Male

DRUGS (15)
  1. REMERON SOLTAB [Suspect]
     Indication: BACK PAIN
     Dosage: 30 MG ORAL, REMERON EXPOSURE WAS FROM AT LEAST 23 MAR 2004 TO 18 SEP 2004
     Route: 048
     Dates: start: 20040323, end: 20040918
  2. REMERON SOLTAB [Suspect]
     Indication: PAIN IN EXTREMITY
     Dosage: 30 MG ORAL, REMERON EXPOSURE WAS FROM AT LEAST 23 MAR 2004 TO 18 SEP 2004
     Route: 048
     Dates: start: 20040323, end: 20040918
  3. ACTIQ [Suspect]
     Indication: BACK PAIN
     Dosage: 400 UG BID BUCCAL
     Route: 002
     Dates: start: 20040331, end: 20041111
  4. ACTIQ [Suspect]
     Indication: PAIN IN EXTREMITY
     Dosage: 400 UG BID BUCCAL
     Route: 002
     Dates: start: 20040331, end: 20041111
  5. ACTIQ [Suspect]
     Indication: BACK PAIN
     Dosage: 600 UG BID BUCCAL
     Route: 002
     Dates: start: 20041112, end: 20050101
  6. ACTIQ [Suspect]
     Indication: PAIN IN EXTREMITY
     Dosage: 600 UG BID BUCCAL
     Route: 002
     Dates: start: 20041112, end: 20050101
  7. ACTIQ [Suspect]
     Indication: BACK PAIN
     Dosage: 600 UG QD BUCCAL
     Route: 002
     Dates: start: 20050101
  8. ACTIQ [Suspect]
     Indication: PAIN IN EXTREMITY
     Dosage: 600 UG QD BUCCAL
     Route: 002
     Dates: start: 20050101
  9. DURAGESIC-100 [Suspect]
     Indication: PAIN
     Dosage: 50 UG Q1HR TRANSDERMAL
     Route: 062
     Dates: end: 20040510
  10. DURAGESIC-100 [Suspect]
     Indication: PAIN
     Dosage: 25 UG Q1HR TRANSDERMAL
     Route: 062
     Dates: start: 20040511, end: 20040810
  11. DURAGESIC-100 [Suspect]
     Indication: PAIN
     Dosage: 50 UG Q1HR TRANSDERMAL
     Route: 062
     Dates: start: 20040811, end: 20050101
  12. EFFEXOR [Suspect]
     Dosage: 75 MG ORAL, QAM
     Route: 048
     Dates: start: 20040401, end: 20040528
  13. EFFEXOR [Suspect]
     Dosage: 150 MG ORAL, QAM
     Route: 048
     Dates: start: 20040529, end: 20050207
  14. NEURONTIN [Suspect]
     Dosage: 600 MG TID ORAL
     Route: 048
     Dates: start: 20040403, end: 20061115
  15. PARECOXIB SODIUM [Suspect]
     Dosage: 20 MG QD ORAL
     Route: 048
     Dates: start: 20040402, end: 20050208

REACTIONS (8)
  - DENTAL CARIES [None]
  - DEVICE FAILURE [None]
  - DRUG DEPENDENCE [None]
  - DRUG WITHDRAWAL SYNDROME [None]
  - ERECTILE DYSFUNCTION [None]
  - TOOTH FRACTURE [None]
  - TOOTH LOSS [None]
  - TOOTHACHE [None]
